FAERS Safety Report 8661696 (Version 3)
Quarter: 2013Q1

REPORT INFORMATION
  Report Type: Spontaneous
  Country: US (occurrence: US)
  Receive Date: 20120712
  Receipt Date: 20130109
  Transmission Date: 20140127
  Serious: No
  Sender: FDA-Public Use
  Company Number: US-009507513-1207USA000864

PATIENT
  Sex: Female

DRUGS (2)
  1. NASONEX [Suspect]
     Indication: HYPERSENSITIVITY
     Dosage: 100 MICROGRAM, BID
     Dates: start: 200807
  2. NASONEX [Suspect]
     Dosage: UNK

REACTIONS (9)
  - Fatigue [Not Recovered/Not Resolved]
  - Sinus disorder [Not Recovered/Not Resolved]
  - Headache [Not Recovered/Not Resolved]
  - Upper-airway cough syndrome [Unknown]
  - Nausea [Unknown]
  - Eye swelling [Unknown]
  - Vision blurred [Unknown]
  - Product quality issue [Unknown]
  - Anxiety [Unknown]
